FAERS Safety Report 6154385-9 (Version None)
Quarter: 2009Q2

REPORT INFORMATION
  Report Type: 
  Country: None (occurrence: None)
  Receive Date: 20090414
  Receipt Date: 20090403
  Transmission Date: 20091009
  Serious: Yes (Other)
  Sender: FDA-Public Use
  Company Number: US-JNJFOC-20090401723

PATIENT
  Sex: Female

DRUGS (7)
  1. REMICADE [Suspect]
     Route: 042
  2. REMICADE [Suspect]
     Indication: CROHN'S DISEASE
     Route: 042
  3. TENORMIN [Concomitant]
  4. ACTONEL [Concomitant]
     Indication: DRUG USE FOR UNKNOWN INDICATION
  5. MULTI-VITAMIN [Concomitant]
  6. MERCAPTOPURINE [Concomitant]
     Indication: CROHN'S DISEASE
  7. COLAZAL [Concomitant]
     Indication: CROHN'S DISEASE

REACTIONS (1)
  - LYMPHOMA [None]
